FAERS Safety Report 19577899 (Version 4)
Quarter: 2022Q3

REPORT INFORMATION
  Report Type: Spontaneous
  Country: CA (occurrence: CA)
  Receive Date: 20210719
  Receipt Date: 20220915
  Transmission Date: 20221027
  Serious: Yes (Other)
  Sender: FDA-Public Use
  Company Number: CA-SAMSUNG BIOEPIS-SB-2021-17323

PATIENT
  Age: 40 Year
  Sex: Male
  Weight: 93 kg

DRUGS (24)
  1. INFLIXIMAB [Suspect]
     Active Substance: INFLIXIMAB
     Indication: Crohn^s disease
     Route: 042
  2. ACETAMINOPHEN [Concomitant]
     Active Substance: ACETAMINOPHEN
     Indication: Illness
     Dosage: AS REQUIRED
     Route: 065
  3. ACETAMINOPHEN/DEXTROMETHORPHAN HYDROBROMIDE/GUAIFENESIN/PSEUDOEPHEDRIN [Concomitant]
     Indication: Illness
     Dosage: UNKNOWN, AS REQUIRED
     Route: 065
  4. ADDERALL [Concomitant]
     Active Substance: AMPHETAMINE ASPARTATE\AMPHETAMINE SULFATE\DEXTROAMPHETAMINE SACCHARATE\DEXTROAMPHETAMINE SULFATE
     Indication: Product used for unknown indication
     Route: 065
  5. ATIVAN [Concomitant]
     Active Substance: LORAZEPAM
     Indication: Product used for unknown indication
     Dosage: UNKNOWN
     Route: 065
  6. ATOMOXETINE HYDROCHLORIDE [Concomitant]
     Active Substance: ATOMOXETINE HYDROCHLORIDE
     Indication: Product used for unknown indication
     Dosage: UNKNOWN
     Route: 065
  7. BENADRYL [Concomitant]
     Active Substance: DIPHENHYDRAMINE HYDROCHLORIDE
     Indication: Hypersensitivity
     Dosage: UNKNOWN
     Route: 065
  8. BETAMETHASONE [Concomitant]
     Active Substance: BETAMETHASONE
     Indication: Product used for unknown indication
     Dosage: UNKNOWN, AS REQUIRED
     Route: 061
  9. BUDESONIDE [Concomitant]
     Active Substance: BUDESONIDE
     Indication: Product used for unknown indication
     Dosage: UNKNOWN
     Route: 065
  10. CALCIUM CARBONATE [Concomitant]
     Active Substance: CALCIUM CARBONATE
     Indication: Product used for unknown indication
     Dosage: UNKNOWN
     Route: 065
  11. CANNABIDIOL/DRONABINOL [Concomitant]
     Indication: Gastrointestinal pain
     Dosage: UNKNOWN
     Route: 065
  12. CONCERTA [Concomitant]
     Active Substance: METHYLPHENIDATE HYDROCHLORIDE
     Indication: Product used for unknown indication
     Dosage: UNKNOWN, TABLET (EXTENDED RELEASE)
     Route: 065
  13. EPINEPHRINE [Concomitant]
     Active Substance: EPINEPHRINE
     Indication: Hypersensitivity
     Route: 065
  14. FLAGYL [Concomitant]
     Active Substance: METRONIDAZOLE\METRONIDAZOLE HYDROCHLORIDE
     Indication: Product used for unknown indication
     Dosage: UNKNOWN
     Route: 065
  15. HYDROCORTISONE [Concomitant]
     Active Substance: HYDROCORTISONE
     Indication: Product used for unknown indication
     Dosage: UNKNOWN, AS RECQUIRED
     Route: 061
  16. IBUPROFEN [Concomitant]
     Active Substance: IBUPROFEN
     Indication: Pain
     Dosage: UNKNOWN
     Route: 065
  17. MODAFINIL [Concomitant]
     Active Substance: MODAFINIL
     Indication: Product used for unknown indication
     Route: 065
  18. PARA-AMINOSALICYLIC ACID [Concomitant]
     Active Substance: AMINOSALICYLIC ACID
     Indication: Product used for unknown indication
     Route: 065
  19. BISMUTH SUBSALICYLATE\CALCIUM CARBONATE [Concomitant]
     Active Substance: BISMUTH SUBSALICYLATE\CALCIUM CARBONATE
     Indication: Product used for unknown indication
     Dosage: UNKNOWN
     Route: 065
  20. PREDNISONE [Concomitant]
     Active Substance: PREDNISONE
     Indication: Product used for unknown indication
     Dosage: UNKNOWN
     Route: 065
  21. QVAR [Concomitant]
     Active Substance: BECLOMETHASONE DIPROPIONATE
     Indication: Product used for unknown indication
     Dosage: INHALATION
     Route: 065
  22. TYLENOL EXTRA STRENGTH [Concomitant]
     Active Substance: ACETAMINOPHEN
     Indication: Pain
     Route: 048
  23. TYLENOL EXTRA STRENGTH [Concomitant]
     Active Substance: ACETAMINOPHEN
     Indication: Headache
  24. VENTOLIN [Concomitant]
     Active Substance: ALBUTEROL SULFATE
     Indication: Product used for unknown indication
     Dosage: UNKNOWN
     Route: 065

REACTIONS (27)
  - Anxiety [Not Recovered/Not Resolved]
  - Arthralgia [Not Recovered/Not Resolved]
  - Arthritis [Not Recovered/Not Resolved]
  - Blood pressure increased [Not Recovered/Not Resolved]
  - Colitis ulcerative [Not Recovered/Not Resolved]
  - Condition aggravated [Not Recovered/Not Resolved]
  - Ear swelling [Not Recovered/Not Resolved]
  - Faecal calprotectin increased [Not Recovered/Not Resolved]
  - Fatigue [Recovered/Resolved]
  - Feeling abnormal [Not Recovered/Not Resolved]
  - Feeling hot [Recovered/Resolved]
  - Food allergy [Not Recovered/Not Resolved]
  - Functional gastrointestinal disorder [Not Recovered/Not Resolved]
  - Headache [Recovered/Resolved]
  - Heart rate increased [Not Recovered/Not Resolved]
  - Hypertension [Not Recovered/Not Resolved]
  - Pain in extremity [Not Recovered/Not Resolved]
  - Skin disorder [Not Recovered/Not Resolved]
  - Weight increased [Not Recovered/Not Resolved]
  - Dizziness [Not Recovered/Not Resolved]
  - Pain [Not Recovered/Not Resolved]
  - Abscess [Not Recovered/Not Resolved]
  - Drug level above therapeutic [Not Recovered/Not Resolved]
  - Therapeutic response shortened [Not Recovered/Not Resolved]
  - Inappropriate schedule of product administration [Not Recovered/Not Resolved]
  - Off label use [Not Recovered/Not Resolved]
  - Intentional product use issue [Not Recovered/Not Resolved]
